FAERS Safety Report 9918561 (Version 2)
Quarter: 2014Q2

REPORT INFORMATION
  Report Type: Spontaneous
  Country: US (occurrence: US)
  Receive Date: 20140224
  Receipt Date: 20140423
  Transmission Date: 20141212
  Serious: No
  Sender: FDA-Public Use
  Company Number: US-BIOGENIDEC-2014BI015292

PATIENT
  Sex: Female
  Weight: 50 kg

DRUGS (10)
  1. TECFIDERA [Suspect]
     Indication: MULTIPLE SCLEROSIS
     Route: 048
     Dates: start: 20131215, end: 20131218
  2. TECFIDERA [Suspect]
     Indication: MULTIPLE SCLEROSIS
     Route: 048
     Dates: start: 201401
  3. TECFIDERA [Suspect]
     Indication: MULTIPLE SCLEROSIS
     Route: 048
     Dates: start: 201401
  4. DIAZEPAM [Concomitant]
  5. LASIX [Concomitant]
  6. LINZESS [Concomitant]
  7. LISINOPRIL [Concomitant]
  8. VITAMIN A [Concomitant]
  9. VITAMIN D [Concomitant]
  10. VITAMIN E [Concomitant]

REACTIONS (2)
  - Chest pain [Unknown]
  - Hepatic enzyme increased [Unknown]
